FAERS Safety Report 16030578 (Version 3)
Quarter: 2022Q1

REPORT INFORMATION
  Report Type: Spontaneous
  Country: US (occurrence: US)
  Receive Date: 20190304
  Receipt Date: 20220223
  Transmission Date: 20220423
  Serious: No
  Sender: FDA-Public Use
  Company Number: US-PFIZER INC-2019096877

PATIENT
  Age: 75 Year
  Sex: Female
  Weight: 39.92 kg

DRUGS (2)
  1. VFEND [Suspect]
     Active Substance: VORICONAZOLE
     Indication: Fungal infection
     Dosage: 100 MG, 2X/DAY (VFEND 50 MG 2 IN MORNING 2 AT NIGHT)
     Route: 048
     Dates: start: 201803
  2. VFEND [Suspect]
     Active Substance: VORICONAZOLE
     Indication: Clostridium difficile infection

REACTIONS (2)
  - Ocular discomfort [Unknown]
  - Off label use [Unknown]
